FAERS Safety Report 5234350-6 (Version None)
Quarter: 2007Q1

REPORT INFORMATION
  Report Type: 
  Country: None (occurrence: None)
  Receive Date: 20070209
  Receipt Date: 20070201
  Transmission Date: 20070707
  Serious: Yes (Other)
  Sender: FDA-Public Use
  Company Number: JP-ABBOTT-07P-087-0358152-00

PATIENT
  Age: 45 Year
  Sex: Male
  Weight: 60 kg

DRUGS (15)
  1. SEVOFLURANE [Suspect]
     Indication: MAINTENANCE OF ANAESTHESIA
     Dosage: 1.0 TO 1.5%
  2. SEVOFLURANE [Suspect]
     Route: 055
  3. SEVOFLURANE [Suspect]
     Route: 055
  4. BUPRENORPHINE HCL [Concomitant]
     Indication: ANAESTHETIC PREMEDICATION
     Route: 054
  5. THYAMIRAL [Concomitant]
     Indication: INDUCTION OF ANAESTHESIA
     Dosage: NOT REPORTED
  6. SUCCINYLCHOLINE CHLORIDE [Concomitant]
     Indication: INDUCTION OF ANAESTHESIA
     Dosage: NOT REPORTED
  7. OXYGEN [Concomitant]
     Indication: MAINTENANCE OF ANAESTHESIA
     Dosage: NOT REPORTED
  8. NITROUS OXIDE W/ OXYGEN [Concomitant]
     Indication: MAINTENANCE OF ANAESTHESIA
     Dosage: NOT REPORTED
  9. PANCURONIUM [Concomitant]
     Indication: MAINTENANCE OF ANAESTHESIA
     Dosage: NOT REPORTED
  10. NITROGLYCERIN [Concomitant]
     Indication: HYPOTENSIVE ANAESTHESIA PROCEDURE
     Dosage: 1 MCG/KG/MIN
  11. NITROGLYCERIN [Concomitant]
     Indication: MAINTENANCE OF ANAESTHESIA
     Dosage: NOT REPORTED
  12. NITROGLYCERIN [Concomitant]
     Dosage: 2.5MCG/KG/MIN
  13. ISOFLURANE [Concomitant]
     Indication: DRUG USE FOR UNKNOWN INDICATION
     Route: 055
  14. EPINEPHRINE [Concomitant]
     Indication: DRUG USE FOR UNKNOWN INDICATION
  15. NEUROMUSCULAR ANTAGONIST [Concomitant]
     Indication: DRUG USE FOR UNKNOWN INDICATION
     Dosage: NOT REPORTED

REACTIONS (1)
  - PULMONARY OEDEMA [None]
